FAERS Safety Report 8529372-3 (Version None)
Quarter: 2012Q2

REPORT INFORMATION
  Report Type: 
  Country: None (occurrence: None)
  Receive Date: 20120409
  Receipt Date: 20110818
  Transmission Date: 20120825
  Serious: Yes (Life-Threatening, Hospitalization, Other)
  Sender: FDA-Public Use
  Company Number: 2011-343

PATIENT
  Age: 47 Year
  Sex: Male

DRUGS (1)
  1. FAZACLO ODT [Suspect]
     Indication: SCHIZOPHRENIA
     Dosage: 300 MG, QD, ORAL
     Route: 048
     Dates: start: 20110714, end: 20110816

REACTIONS (4)
  - WHITE BLOOD CELL COUNT DECREASED [None]
  - PYREXIA [None]
  - INTESTINAL OBSTRUCTION [None]
  - AGRANULOCYTOSIS [None]
